FAERS Safety Report 24643014 (Version 1)
Quarter: 2024Q4

REPORT INFORMATION
  Report Type: Spontaneous
  Country: CN (occurrence: CN)
  Receive Date: 20241120
  Receipt Date: 20241120
  Transmission Date: 20250114
  Serious: Yes (Other)
  Sender: ORGANON
  Company Number: CN-ORGANON-O2411CHN000783

PATIENT
  Age: 62 Year
  Sex: Female
  Weight: 59 kg

DRUGS (5)
  1. FOSAMAX [Suspect]
     Active Substance: ALENDRONATE SODIUM
     Indication: Osteoporosis
     Dosage: 70 MG, QW, PO
     Route: 048
     Dates: start: 20230304, end: 20230520
  2. FOSAMAX [Suspect]
     Active Substance: ALENDRONATE SODIUM
     Dosage: 70 MG, QW, PO
     Route: 048
     Dates: start: 20230527, end: 20240127
  3. MINODRONIC ACID [Suspect]
     Active Substance: MINODRONIC ACID
     Dosage: ONCE EVERY 4 WEEKS
     Route: 048
     Dates: start: 20230303, end: 20240105
  4. CALCIUM CARBONATE [Suspect]
     Active Substance: CALCIUM CARBONATE
     Dosage: 1 TABLET DAILY
     Route: 048
     Dates: start: 20230303, end: 20240129
  5. VITAMIN D3 [Suspect]
     Active Substance: CHOLECALCIFEROL
     Dosage: 1 TABLET DAILY
     Route: 048

REACTIONS (1)
  - Blood glucose increased [Recovering/Resolving]

NARRATIVE: CASE EVENT DATE: 20231115
